FAERS Safety Report 24591992 (Version 1)
Quarter: 2024Q4

REPORT INFORMATION
  Report Type: Spontaneous
  Country: NO (occurrence: NO)
  Receive Date: 20241108
  Receipt Date: 20241108
  Transmission Date: 20250115
  Serious: Yes (Other)
  Sender: TAKEDA
  Company Number: NO-TAKEDA-2024TUS111431

PATIENT
  Sex: Female

DRUGS (1)
  1. ENTYVIO [Suspect]
     Active Substance: VEDOLIZUMAB
     Indication: Product used for unknown indication
     Dosage: 225 MILLIGRAM
     Route: 042

REACTIONS (5)
  - Pneumonia [Unknown]
  - Genital infection fungal [Unknown]
  - Off label use [Unknown]
  - Infection [Unknown]
  - Herpes zoster [Unknown]
